FAERS Safety Report 9101799 (Version 2)
Quarter: 2013Q2

REPORT INFORMATION
  Report Type: Spontaneous
  Country: US (occurrence: US)
  Receive Date: 20130218
  Receipt Date: 20130520
  Transmission Date: 20140414
  Serious: Yes (Hospitalization)
  Sender: FDA-Public Use
  Company Number: US-ELI_LILLY_AND_COMPANY-US201302002795

PATIENT
  Sex: Female

DRUGS (13)
  1. FORTEO [Suspect]
     Indication: OSTEOPOROSIS
     Dosage: 20 UG, QD
     Dates: start: 20110606
  2. TRAZODONE [Concomitant]
     Indication: SLEEP DISORDER
     Dosage: 50 MG, QD HS
  3. TRAMADOL HCL [Concomitant]
     Indication: PAIN
     Dosage: 50 MG, PRN
  4. RANEXA [Concomitant]
     Dosage: 500 MG, BID
  5. CARVEDILOL [Concomitant]
     Dosage: 12.5 MG, BID
  6. CLOPIDOGREL [Concomitant]
     Dosage: 75 MG, QD
  7. DIOVAN [Concomitant]
     Dosage: 160 MG, QD
  8. LEVOTHYROXINE [Concomitant]
     Indication: THYROID DISORDER
     Dosage: 112 MG HALF TAB QD
  9. HYDRALAZINE [Concomitant]
     Dosage: 50 MG, BID
  10. FUROSEMIDE [Concomitant]
     Dosage: 40 MG, QD
  11. ASPIRIN [Concomitant]
     Dosage: 81 MG, QD
  12. NITROGLYCERIN [Concomitant]
     Dosage: UNK, PRN
  13. LEVOFLOXACIN [Concomitant]
     Dosage: 500 MG, QD

REACTIONS (12)
  - Renal failure [Unknown]
  - Malaise [Unknown]
  - Gastric disorder [Unknown]
  - Cardiac disorder [Unknown]
  - Asthenia [Unknown]
  - Hypertension [Unknown]
  - Cardiac failure congestive [Unknown]
  - Macular degeneration [Unknown]
  - Glaucoma [Unknown]
  - Pain [Unknown]
  - Frustration [Unknown]
  - Memory impairment [Unknown]
